FAERS Safety Report 4630328-1 (Version None)
Quarter: 2005Q2

REPORT INFORMATION
  Report Type: 
  Country: None (occurrence: None)
  Receive Date: 20050406
  Receipt Date: 20050317
  Transmission Date: 20051028
  Serious: Yes (Hospitalization)
  Sender: FDA-Public Use
  Company Number: USA050393521

PATIENT
  Age: 17 Year
  Sex: Male
  Weight: 95 kg

DRUGS (1)
  1. STRATTERA [Suspect]
     Indication: ATTENTION DEFICIT/HYPERACTIVITY DISORDER
     Dosage: 40 MG/1 AT BEDTIME
     Dates: start: 20030101, end: 20050314

REACTIONS (3)
  - ABDOMINAL PAIN [None]
  - NASOPHARYNGITIS [None]
  - RHABDOMYOLYSIS [None]
